FAERS Safety Report 16597531 (Version 2)
Quarter: 2019Q3

REPORT INFORMATION
  Report Type: Report from Study
  Country: JP (occurrence: JP)
  Receive Date: 20190719
  Receipt Date: 20190903
  Transmission Date: 20191004
  Serious: Yes (Hospitalization, Other)
  Sender: FDA-Public Use
  Company Number: JP-SAKK-2019SA150586AA

PATIENT
  Age: 69 Year
  Sex: Female
  Weight: 49.35 kg

DRUGS (29)
  1. AFLIBERCEPT [Suspect]
     Active Substance: AFLIBERCEPT
     Dosage: 2 MG/KG, 1X
     Route: 041
     Dates: start: 20180928, end: 20180928
  2. IRINOTECAN [Suspect]
     Active Substance: IRINOTECAN
     Indication: COLON CANCER
     Dosage: 100 MG/M2, QOW
     Route: 065
     Dates: start: 20181105, end: 20181119
  3. IRINOTECAN [Suspect]
     Active Substance: IRINOTECAN
     Dosage: 100 MG/M2, 1X
     Route: 065
     Dates: start: 20180619, end: 20180619
  4. IRINOTECAN [Suspect]
     Active Substance: IRINOTECAN
     Dosage: 100 MG/M2, QOW
     Route: 065
     Dates: start: 20180928, end: 20181012
  5. FLUOROURACIL. [Suspect]
     Active Substance: FLUOROURACIL
     Indication: COLON CANCER
     Dosage: 1920 MG/M2, QOW
     Route: 041
     Dates: start: 20181105, end: 20181119
  6. FLUOROURACIL. [Suspect]
     Active Substance: FLUOROURACIL
     Dosage: 400 MG/M2, QOW
     Route: 040
     Dates: start: 20180928, end: 20181012
  7. FLUOROURACIL. [Suspect]
     Active Substance: FLUOROURACIL
     Dosage: 400 MG/M2, QOW
     Route: 040
     Dates: start: 20180720, end: 20180803
  8. CALCIUM FOLINATE [Suspect]
     Active Substance: LEUCOVORIN CALCIUM
     Dosage: 200 MG/M2, 1X
     Route: 065
     Dates: start: 20181217, end: 20181217
  9. FLUOROURACIL. [Suspect]
     Active Substance: FLUOROURACIL
     Dosage: 400 MG/M2, QOW
     Route: 040
     Dates: start: 20181105, end: 20181119
  10. FLUOROURACIL. [Suspect]
     Active Substance: FLUOROURACIL
     Dosage: 400 MG/M2, 1X
     Route: 040
     Dates: start: 20180831, end: 20180831
  11. FLUOROURACIL. [Suspect]
     Active Substance: FLUOROURACIL
     Dosage: 2400 MG/M2, 1X
     Route: 041
     Dates: start: 20180831, end: 20180831
  12. FLUOROURACIL. [Suspect]
     Active Substance: FLUOROURACIL
     Dosage: 1920 MG/M2, QOW
     Route: 041
     Dates: start: 20180928, end: 20181012
  13. AFLIBERCEPT [Suspect]
     Active Substance: AFLIBERCEPT
     Dosage: 4 MG/KG, 1X
     Route: 041
     Dates: start: 20180619, end: 20180619
  14. AFLIBERCEPT [Suspect]
     Active Substance: AFLIBERCEPT
     Dosage: 4 MG/KG, 1X
     Route: 041
     Dates: start: 20180831, end: 20180831
  15. CALCIUM FOLINATE [Suspect]
     Active Substance: LEUCOVORIN CALCIUM
     Dosage: 200 MG/M2, 1X
     Route: 065
     Dates: start: 20180831, end: 20180831
  16. AFLIBERCEPT [Suspect]
     Active Substance: AFLIBERCEPT
     Indication: COLON CANCER
     Dosage: 2 MG/KG, 1X
     Route: 041
     Dates: start: 20181119, end: 20181119
  17. FLUOROURACIL. [Suspect]
     Active Substance: FLUOROURACIL
     Dosage: 400 MG/M2, 1X
     Route: 040
     Dates: start: 20180619, end: 20180619
  18. CALCIUM FOLINATE [Suspect]
     Active Substance: LEUCOVORIN CALCIUM
     Dosage: 200 MG/M2, QOW
     Route: 065
     Dates: start: 20180928, end: 20181012
  19. CALCIUM FOLINATE [Suspect]
     Active Substance: LEUCOVORIN CALCIUM
     Dosage: 200 MG/M2, 1X
     Route: 065
     Dates: start: 20180619, end: 20180619
  20. CALCIUM FOLINATE [Suspect]
     Active Substance: LEUCOVORIN CALCIUM
     Dosage: 200 MG/M2, QOW
     Route: 065
     Dates: start: 20180720, end: 20180803
  21. CALCIUM FOLINATE [Suspect]
     Active Substance: LEUCOVORIN CALCIUM
     Indication: COLON CANCER
     Dosage: 200 MG/M2, QOW
     Route: 065
     Dates: start: 20181105, end: 20181119
  22. IRINOTECAN [Suspect]
     Active Substance: IRINOTECAN
     Dosage: 100 MG/M2, 1X
     Route: 065
     Dates: start: 20181217, end: 20181217
  23. AFLIBERCEPT [Suspect]
     Active Substance: AFLIBERCEPT
     Dosage: 2 MG/KG, 1X
     Route: 041
     Dates: start: 20181217, end: 20181217
  24. IRINOTECAN [Suspect]
     Active Substance: IRINOTECAN
     Dosage: 100 MG/M2, QOW
     Route: 065
     Dates: start: 20180720, end: 20180803
  25. IRINOTECAN [Suspect]
     Active Substance: IRINOTECAN
     Dosage: 100 MG/M2, 1X
     Route: 065
     Dates: start: 20180831, end: 20180831
  26. FLUOROURACIL. [Suspect]
     Active Substance: FLUOROURACIL
     Dosage: 1920 MG/M2, 1X
     Route: 041
     Dates: start: 20181217, end: 20181217
  27. AFLIBERCEPT [Suspect]
     Active Substance: AFLIBERCEPT
     Dosage: 4 MG/KG, QOW
     Route: 041
     Dates: start: 20180720, end: 20180803
  28. FLUOROURACIL. [Suspect]
     Active Substance: FLUOROURACIL
     Dosage: 2400 MG/M2, 1X
     Route: 041
     Dates: start: 20180619, end: 20180619
  29. FLUOROURACIL. [Suspect]
     Active Substance: FLUOROURACIL
     Dosage: 2400 MG/M2, QOW
     Route: 041
     Dates: start: 20180720, end: 20180803

REACTIONS (3)
  - Neutrophil count decreased [Recovered/Resolved]
  - Hepatic encephalopathy [Recovered/Resolved]
  - Hyperammonaemia [Recovered/Resolved]

NARRATIVE: CASE EVENT DATE: 20181123
